FAERS Safety Report 8869509 (Version 2)
Quarter: 2013Q2

REPORT INFORMATION
  Report Type: Spontaneous
  Country: US (occurrence: US)
  Receive Date: 20121023
  Receipt Date: 20130621
  Transmission Date: 20140414
  Serious: Yes (Other)
  Sender: FDA-Public Use
  Company Number: US-AMGEN-USASP2012051610

PATIENT
  Age: 38 Year
  Sex: Male

DRUGS (1)
  1. ENBREL [Suspect]
     Indication: PSORIASIS
     Dosage: 50 MG, 3 TIMES/WK
     Route: 065
     Dates: start: 20120706, end: 201301

REACTIONS (5)
  - Gene mutation [Unknown]
  - Staphylococcal abscess [Recovered/Resolved]
  - Renal neoplasm [Recovered/Resolved]
  - Tendon rupture [Recovered/Resolved]
  - Laceration [Recovered/Resolved]
